FAERS Safety Report 9355843 (Version 1)
Quarter: 2013Q2

REPORT INFORMATION
  Report Type: Spontaneous
  Country: IT (occurrence: None)
  Receive Date: 20130614
  Receipt Date: 20130614
  Transmission Date: 20140414
  Serious: Yes (Other)
  Sender: FDA-Public Use
  Company Number: IT-1198716

PATIENT
  Age: 15 Year
  Sex: Female

DRUGS (6)
  1. VIGAMOX [Suspect]
     Indication: KERATITIS
     Route: 047
  2. CHLORAMPHENICOL [Suspect]
     Indication: KERATITIS
     Route: 047
  3. COLISTIMETHATE SODIUM [Suspect]
     Indication: KERATITIS
     Route: 047
  4. TETRACYCLINE [Suspect]
     Indication: KERATITIS
     Route: 047
  5. ATROPINE [Concomitant]
  6. FLUCONAZOLE [Concomitant]

REACTIONS (4)
  - Corneal flap complication [None]
  - Hypopyon [None]
  - Drug ineffective [None]
  - Inappropriate schedule of drug administration [None]
